FAERS Safety Report 17461809 (Version 1)
Quarter: 2020Q1

REPORT INFORMATION
  Report Type: Spontaneous
  Country: TW (occurrence: TW)
  Receive Date: 20200226
  Receipt Date: 20200226
  Transmission Date: 20200409
  Serious: Yes (Death)
  Sender: FDA-Public Use
  Company Number: TW-ROCHE-2555646

PATIENT
  Age: 66 Year
  Sex: Male
  Weight: 72.5 kg

DRUGS (1)
  1. MABTHERA [Suspect]
     Active Substance: RITUXIMAB
     Indication: GRANULOMATOSIS WITH POLYANGIITIS
     Dosage: WEEKLY 500 MG FOR 4 CYCLES
     Route: 042
     Dates: start: 20191021, end: 20191111

REACTIONS (5)
  - Acute kidney injury [Fatal]
  - Acute respiratory distress syndrome [Fatal]
  - Pneumonia cytomegaloviral [Fatal]
  - Pneumocystis jirovecii pneumonia [Fatal]
  - Glomerulonephritis rapidly progressive [Fatal]

NARRATIVE: CASE EVENT DATE: 20200109
